FAERS Safety Report 21801136 (Version 1)
Quarter: 2022Q4

REPORT INFORMATION
  Report Type: Report from Study
  Country: US (occurrence: US)
  Receive Date: 20221230
  Receipt Date: 20221230
  Transmission Date: 20230112
  Serious: No
  Sender: FDA-Public Use
  Company Number: US-ACORDA-ACO_171606_2022

PATIENT
  Sex: Female

DRUGS (3)
  1. INBRIJA [Interacting]
     Active Substance: LEVODOPA
     Indication: Parkinson^s disease
     Dosage: 2 DOSAGE FORM, PRN, UP TO 5 TIMES DAILY
     Dates: start: 20200221
  2. INBRIJA [Interacting]
     Active Substance: LEVODOPA
     Indication: On and off phenomenon
  3. GOCOVRI [Interacting]
     Active Substance: AMANTADINE
     Indication: Product used for unknown indication
     Dosage: UNKNOWN

REACTIONS (2)
  - Drug interaction [Not Recovered/Not Resolved]
  - Condition aggravated [Not Recovered/Not Resolved]
